FAERS Safety Report 18393649 (Version 1)
Quarter: 2020Q4

REPORT INFORMATION
  Report Type: Spontaneous
  Country: US (occurrence: US)
  Receive Date: 20201016
  Receipt Date: 20201016
  Transmission Date: 20210114
  Serious: Yes (Other)
  Sender: FDA-Public Use
  Company Number: US-FRESENIUS KABI-FK202010759

PATIENT
  Age: 67 Year
  Sex: Female
  Weight: 65.8 kg

DRUGS (3)
  1. HEPARIN SODIUM INJECTION, USP [Suspect]
     Active Substance: HEPARIN SODIUM
     Indication: PRODUCT USED FOR UNKNOWN INDICATION
     Dosage: 22000 UNITS TOTAL ON 28SEP2020
     Dates: start: 20200928, end: 20200928
  2. HEPARIN SODIUM INJECTION, USP [Suspect]
     Active Substance: HEPARIN SODIUM
     Dosage: 22000 UNITS TOTAL ON 28SEP2020
     Dates: start: 20200928, end: 20200928
  3. HEPARIN [Suspect]
     Active Substance: HEPARIN SODIUM
     Indication: PRODUCT USED FOR UNKNOWN INDICATION
     Dosage: 25000 UNITS PER 250 ML
     Dates: start: 20200925, end: 20200929

REACTIONS (1)
  - Vascular graft occlusion [Recovering/Resolving]

NARRATIVE: CASE EVENT DATE: 20200929
